FAERS Safety Report 8008363-5 (Version None)
Quarter: 2011Q4

REPORT INFORMATION
  Report Type: 
  Country: None (occurrence: None)
  Receive Date: 20111227
  Receipt Date: 20111221
  Transmission Date: 20120403
  Serious: No
  Sender: FDA-Public Use
  Company Number: US-TEVA-314701USA

PATIENT
  Sex: Male
  Weight: 93.07 kg

DRUGS (7)
  1. ESCITALOPRAM [Concomitant]
  2. FLUVASTATIN [Concomitant]
  3. AZILECT [Suspect]
     Indication: PARKINSON'S DISEASE
     Dosage: 1 MILLIGRAM;
     Route: 048
     Dates: start: 20111211
  4. REQUIP [Concomitant]
  5. SINEMET [Concomitant]
  6. IBUPROFEN [Concomitant]
  7. STALEVO 100 [Concomitant]

REACTIONS (2)
  - RESTLESS LEGS SYNDROME [None]
  - PAIN IN EXTREMITY [None]
